FAERS Safety Report 6346810-5 (Version None)
Quarter: 2009Q3

REPORT INFORMATION
  Report Type: 
  Country: None (occurrence: None)
  Receive Date: 20090910
  Receipt Date: 20090903
  Transmission Date: 20100115
  Serious: Yes (Hospitalization)
  Sender: FDA-Public Use
  Company Number: US-BIOGENIDEC-2009BI026158

PATIENT
  Sex: Female
  Weight: 50 kg

DRUGS (12)
  1. TYSABRI [Suspect]
     Indication: MULTIPLE SCLEROSIS
     Route: 042
     Dates: start: 20061026, end: 20090728
  2. NEURONTIN [Concomitant]
     Indication: MUSCULAR WEAKNESS
  3. CELEXA [Concomitant]
     Indication: DEPRESSION
     Route: 048
  4. KLONOPIN [Concomitant]
     Route: 048
  5. PREMPRO [Concomitant]
  6. LISINOPRIL [Concomitant]
     Indication: HYPERTENSION
     Route: 048
  7. METOPROLOL [Concomitant]
     Indication: HYPERTENSION
     Route: 048
  8. PROVIGIL [Concomitant]
  9. ACIPHEX [Concomitant]
     Route: 048
  10. ZANAFLEX [Concomitant]
  11. TRAZODONE [Concomitant]
     Indication: DEPRESSION
  12. AMBIEN CR [Concomitant]

REACTIONS (5)
  - ENCEPHALITIS HERPES [None]
  - HEMIPARESIS [None]
  - MULTIPLE SCLEROSIS RELAPSE [None]
  - NEUROGENIC BLADDER [None]
  - VISION BLURRED [None]
